FAERS Safety Report 5282971-7 (Version None)
Quarter: 2007Q1

REPORT INFORMATION
  Report Type: 
  Country: None (occurrence: None)
  Receive Date: 20070328
  Receipt Date: 20070328
  Transmission Date: 20070707
  Serious: Yes (Other)
  Sender: FDA-Public Use
  Company Number: None

PATIENT
  Age: 77 Year
  Sex: Male
  Weight: 93 kg

DRUGS (9)
  1. LISINOPRIL [Suspect]
  2. MULTI-VITAMIN [Concomitant]
  3. DILTIAZEM (INWOOD) [Concomitant]
  4. BACLOFEN [Concomitant]
  5. METOPROLOL TARTRATE [Concomitant]
  6. SIMVASTATIN [Concomitant]
  7. METFORMIN HCL [Concomitant]
  8. LISINOPRIL [Concomitant]
  9. BETAMETHASONE DIPROPIONATE [Concomitant]

REACTIONS (1)
  - OEDEMA [None]
